FAERS Safety Report 7270215-6 (Version None)
Quarter: 2011Q1

REPORT INFORMATION
  Report Type: 
  Country: None (occurrence: None)
  Receive Date: 20110125
  Receipt Date: 20110125
  Transmission Date: 20110831
  Serious: Yes (Hospitalization)
  Sender: FDA-Public Use
  Company Number: None

PATIENT
  Age: 60 Year
  Sex: Male
  Weight: 108.8633 kg

DRUGS (2)
  1. DEXILANT [Suspect]
     Indication: GASTROOESOPHAGEAL REFLUX DISEASE
     Dosage: 60 MG 1 PER DAY PO
     Route: 048
     Dates: start: 20100201, end: 20101230
  2. DEXILANT [Suspect]
     Indication: DYSPEPSIA
     Dosage: 60 MG 1 PER DAY PO
     Route: 048
     Dates: start: 20100201, end: 20101230

REACTIONS (5)
  - COLITIS [None]
  - DIZZINESS [None]
  - CONSTIPATION [None]
  - NAUSEA [None]
  - MENTAL DISORDER [None]
